FAERS Safety Report 8964074 (Version 1)
Quarter: 2012Q4

REPORT INFORMATION
  Report Type: 
  Country: CA (occurrence: CA)
  Receive Date: 20121213
  Receipt Date: 20121213
  Transmission Date: 20130627
  Serious: Yes (Life-Threatening, Hospitalization)
  Sender: FDA-Public Use
  Company Number: CA-B.I. PHARMACEUTICALS,INC./RIDGEFIELD-2012-CN-02526CN

PATIENT
  Age: 80 Year
  Sex: Female
  Weight: 108 kg

DRUGS (1)
  1. PRADAX [Suspect]
     Dosage: 220 mg
     Route: 048

REACTIONS (1)
  - Myocardial infarction [Unknown]
